FAERS Safety Report 14453785 (Version 1)
Quarter: 2018Q1

REPORT INFORMATION
  Report Type: Spontaneous
  Country: US (occurrence: US)
  Receive Date: 20180129
  Receipt Date: 20180129
  Transmission Date: 20180509
  Serious: No
  Sender: FDA-Public Use
  Company Number: US-ENDO PHARMACEUTICALS INC-2017-003459

PATIENT
  Age: 55 Year
  Sex: Female

DRUGS (4)
  1. GLIMEPIRIDE TABLETS 4MG [Concomitant]
     Active Substance: GLIMEPIRIDE
     Indication: DIABETES MELLITUS
  2. HYDROCODONE BITARTRATE AND ACETAMINOPHEN [Suspect]
     Active Substance: ACETAMINOPHEN\HYDROCODONE BITARTRATE
     Dosage: 1 DF, BID
     Route: 048
     Dates: start: 20170609, end: 20170611
  3. HYDROCODONE BITARTRATE AND ACETAMINOPHEN [Suspect]
     Active Substance: ACETAMINOPHEN\HYDROCODONE BITARTRATE
     Indication: PAIN
     Dosage: 1 DF, BID AS NEEDED
     Route: 048
     Dates: start: 201703
  4. CLOPIDOGREL [Concomitant]
     Active Substance: CLOPIDOGREL BISULFATE
     Indication: ISCHAEMIC HEART DISEASE PROPHYLAXIS

REACTIONS (6)
  - Feeling abnormal [Recovered/Resolved]
  - Balance disorder [Unknown]
  - Nausea [Recovered/Resolved]
  - Posture abnormal [Unknown]
  - Dizziness [Recovered/Resolved]
  - Disorientation [Unknown]

NARRATIVE: CASE EVENT DATE: 20170609
